FAERS Safety Report 8764122 (Version 1)
Quarter: 2012Q4

REPORT INFORMATION
  Report Type: Report from Study
  Country: US (occurrence: US)
  Receive Date: 20120831
  Receipt Date: 20120831
  Transmission Date: 20130627
  Serious: No
  Sender: FDA-Public Use
  Company Number: US-009507513-2012SP033888

PATIENT

DRUGS (2)
  1. NEXPLANON [Suspect]
     Dates: start: 20120425
  2. NEXPLANON [Suspect]
     Dosage: 1 DF, UNK

REACTIONS (2)
  - Medical device complication [Unknown]
  - No adverse event [Unknown]
